FAERS Safety Report 5875284-3 (Version None)
Quarter: 2008Q3

REPORT INFORMATION
  Report Type: 
  Country: None (occurrence: None)
  Receive Date: 20080909
  Receipt Date: 20080904
  Transmission Date: 20090109
  Serious: Yes (Disabling)
  Sender: FDA-Public Use
  Company Number: GB-MERCK-0805GBR00031

PATIENT
  Age: 8 Year
  Sex: Male

DRUGS (3)
  1. SINGULAIR [Suspect]
     Indication: ASTHMA
     Route: 048
     Dates: start: 20080401
  2. ALBUTEROL [Concomitant]
     Indication: ASTHMA
  3. CORTICOSTEROIDS (UNSPECIFIED) [Concomitant]
     Indication: ASTHMA

REACTIONS (2)
  - DRY MOUTH [None]
  - THIRST [None]
